FAERS Safety Report 4619050-5 (Version None)
Quarter: 2005Q1

REPORT INFORMATION
  Report Type: 
  Country: None (occurrence: None)
  Receive Date: 20050317
  Receipt Date: 20050317
  Transmission Date: 20050727
  Serious: Yes (Hospitalization)
  Sender: FDA-Public Use
  Company Number: None

PATIENT
  Age: 63 Year
  Sex: Male

DRUGS (10)
  1. ZOSYN [Suspect]
     Indication: SEPSIS
     Dates: start: 20041115, end: 20041122
  2. GATIFLOXACIN [Suspect]
     Indication: SEPSIS
     Dates: start: 20041122, end: 20041206
  3. RANITIDINE [Concomitant]
  4. COMBIVENT [Concomitant]
  5. GUAIFENESIN [Concomitant]
  6. ELAVIL [Concomitant]
  7. GEMFIBROZIL [Concomitant]
  8. ATENOLOL [Concomitant]
  9. SIMVASTATIN [Concomitant]
  10. TYLENOL W/ CODEINE NO. 3 [Concomitant]

REACTIONS (1)
  - CLOSTRIDIUM COLITIS [None]
